FAERS Safety Report 7464043-6 (Version None)
Quarter: 2011Q2

REPORT INFORMATION
  Report Type: 
  Country: None (occurrence: None)
  Receive Date: 20110506
  Receipt Date: 20110105
  Transmission Date: 20111010
  Serious: No
  Sender: FDA-Public Use
  Company Number: US-BAYER-2011-002592

PATIENT
  Sex: Male

DRUGS (6)
  1. AVELOX [Suspect]
     Indication: PRODUCT USED FOR UNKNOWN INDICATION
     Dosage: UNK
  2. SEROQUEL [Concomitant]
  3. AMBIEN [Concomitant]
  4. XANAX [Concomitant]
  5. LITHIUM [Concomitant]
  6. BETA BLOCKING AGENTS [Concomitant]

REACTIONS (2)
  - ARTHROPATHY [None]
  - PAIN IN EXTREMITY [None]
